FAERS Safety Report 5898902-2 (Version None)
Quarter: 2008Q3

REPORT INFORMATION
  Report Type: 
  Country: None (occurrence: None)
  Receive Date: 20080925
  Receipt Date: 20080917
  Transmission Date: 20090109
  Serious: Yes (Other)
  Sender: FDA-Public Use
  Company Number: US-WYE-H06028108

PATIENT
  Age: 63 Year
  Sex: Female
  Weight: 68.1 kg

DRUGS (10)
  1. EFFEXOR XR [Suspect]
     Indication: HOT FLUSH
     Dates: start: 20071201, end: 20080101
  2. EFFEXOR XR [Interacting]
     Route: 048
     Dates: start: 20080731, end: 20080830
  3. GLUCOSAMINE [Concomitant]
     Indication: ARTHRITIS
     Dosage: UNKNOWN
  4. ULTRAM [Interacting]
     Indication: ARTHRITIS
     Dosage: 50 MG PRN (ABOUT 5 DAYS/WEEK
  5. PREMPRO [Concomitant]
     Indication: HOT FLUSH
     Dates: start: 20080828
  6. PROZAC [Concomitant]
     Indication: HOT FLUSH
     Dosage: UNKNOWN
     Dates: end: 20080829
  7. PROZAC [Concomitant]
     Dosage: UNKNOWN
     Dates: start: 20080908
  8. TOCOPHEROL CONCENTRATE CAP [Concomitant]
     Indication: NUTRITIONAL SUPPORT
     Dosage: UNKNOWN
  9. ASCORBIC ACID/ERGOCALCIFEROL/FOLIC ACID/NICOTINAMIDE/PANTHENOL/RETINOL [Concomitant]
     Indication: NUTRITIONAL SUPPORT
     Dosage: UNKNOWN
  10. IBUPROFEN [Concomitant]
     Indication: ARTHRITIS
     Dosage: ^PRN^

REACTIONS (6)
  - ALTERED STATE OF CONSCIOUSNESS [None]
  - COORDINATION ABNORMAL [None]
  - DRUG INEFFECTIVE FOR UNAPPROVED INDICATION [None]
  - DRUG INTERACTION [None]
  - TRANSIENT ISCHAEMIC ATTACK [None]
  - TREMOR [None]
